FAERS Safety Report 5626048-7 (Version None)
Quarter: 2008Q1

REPORT INFORMATION
  Report Type: 
  Country: None (occurrence: None)
  Receive Date: 20080214
  Receipt Date: 20080205
  Transmission Date: 20080703
  Serious: Yes (Other)
  Sender: FDA-Public Use
  Company Number: PHBS2008FI01877

PATIENT
  Age: 11 Year
  Sex: Female

DRUGS (2)
  1. AREDIA [Suspect]
     Dosage: 1 MG/KG ON 3 DAYS AT 4-MONTH INTERVALS
     Route: 042
  2. ZOMETA [Suspect]
     Dosage: 0.05 MG/KG ONCE EVERY 6 MONTHS
     Route: 042

REACTIONS (1)
  - BONE DENSITY INCREASED [None]
